FAERS Safety Report 8360020-1 (Version None)
Quarter: 2012Q2

REPORT INFORMATION
  Report Type: 
  Country: None (occurrence: None)
  Receive Date: 20120515
  Receipt Date: 20120514
  Transmission Date: 20120825
  Serious: Yes (Hospitalization)
  Sender: FDA-Public Use
  Company Number: PHHO2012IL001455

PATIENT
  Sex: Male

DRUGS (7)
  1. ASPIRIN [Concomitant]
  2. ANGIOTENSIN CONVERTING ENZYME BLOCKERS [Concomitant]
  3. APIDRA [Concomitant]
     Indication: TYPE 2 DIABETES MELLITUS
     Dosage: 60 IU, UNK
  4. INSULIN GLARGINE [Concomitant]
     Indication: TYPE 2 DIABETES MELLITUS
     Dosage: 50 IU, UNK
  5. BETA BLOCKING AGENTS [Concomitant]
  6. METFORMIN HCL [Concomitant]
     Indication: TYPE 2 DIABETES MELLITUS
     Dosage: UNK
  7. LOPRESSOR [Suspect]
     Indication: TYPE 2 DIABETES MELLITUS

REACTIONS (3)
  - BRADYCARDIA [None]
  - ANGINA PECTORIS [None]
  - NON-CARDIAC CHEST PAIN [None]
